FAERS Safety Report 6215814-5 (Version None)
Quarter: 2009Q2

REPORT INFORMATION
  Report Type: 
  Country: None (occurrence: None)
  Receive Date: 20090605
  Receipt Date: 20090527
  Transmission Date: 20091009
  Serious: Yes (Other)
  Sender: FDA-Public Use
  Company Number: DE-AMGEN-UK342015

PATIENT
  Sex: Male
  Weight: 107 kg

DRUGS (7)
  1. MIMPARA [Suspect]
     Indication: HYPERPARATHYROIDISM SECONDARY
     Route: 048
     Dates: start: 20071109, end: 20080315
  2. SAW PALMETTO [Concomitant]
     Route: 048
     Dates: start: 20031001
  3. SINGULAIR [Concomitant]
     Route: 048
     Dates: start: 20061227
  4. ATROVENT [Concomitant]
     Route: 065
     Dates: start: 20031001
  5. VITARENAL [Concomitant]
     Route: 048
     Dates: start: 20031001
  6. PLAVIX [Concomitant]
     Route: 048
     Dates: start: 20050801
  7. NEORECORMON [Concomitant]
     Route: 042
     Dates: start: 20031001

REACTIONS (1)
  - DIARRHOEA [None]
